FAERS Safety Report 7558105-2 (Version None)
Quarter: 2011Q2

REPORT INFORMATION
  Report Type: 
  Country: None (occurrence: None)
  Receive Date: 20110620
  Receipt Date: 20110610
  Transmission Date: 20111010
  Serious: Yes (Death, Life-Threatening, Hospitalization, Other)
  Sender: FDA-Public Use
  Company Number: JP-AMGEN-JPNCT2010007481

PATIENT
  Age: 59 Year
  Sex: Male
  Weight: 56 kg

DRUGS (12)
  1. FLUOROURACIL [Concomitant]
     Indication: COLORECTAL CANCER
     Route: 040
     Dates: start: 20100806, end: 20100806
  2. PREDNISOLONE [Concomitant]
     Route: 048
  3. OLOPATADINE HCL [Concomitant]
     Route: 048
  4. RABEPRAZOLE SODIUM [Concomitant]
     Dosage: UNK
     Route: 048
  5. FLUOROURACIL [Concomitant]
     Route: 041
     Dates: start: 20100806, end: 20100806
  6. LEUCOVORIN CALCIUM [Concomitant]
     Indication: COLORECTAL CANCER
     Route: 041
     Dates: start: 20100806, end: 20100806
  7. MINOCYCLINE HCL [Concomitant]
     Dosage: UNK
     Route: 048
  8. PANITUMUMAB [Suspect]
     Indication: COLORECTAL CANCER
     Dosage: 6 MG/KG, Q2WK
     Route: 041
     Dates: start: 20100709, end: 20101126
  9. PANITUMUMAB [Suspect]
     Dosage: 4.8 MG/KG, Q2WK
     Route: 041
     Dates: start: 20101210, end: 20101210
  10. JUVELA N [Concomitant]
     Indication: NEUROPATHY PERIPHERAL
     Route: 048
  11. PANITUMUMAB [Suspect]
     Dosage: 4.2 MG/KG, Q2WK
     Route: 041
     Dates: start: 20101126, end: 20101210
  12. IRINOTECAN HCL [Concomitant]
     Indication: COLORECTAL CANCER
     Dosage: 280 MG, Q2WK
     Route: 041
     Dates: start: 20100806, end: 20100806

REACTIONS (4)
  - HYPOMAGNESAEMIA [None]
  - SKIN EXFOLIATION [None]
  - COLORECTAL CANCER [None]
  - DERMATITIS ACNEIFORM [None]
